FAERS Safety Report 5332206-1 (Version None)
Quarter: 2007Q2

REPORT INFORMATION
  Report Type: 
  Country: None (occurrence: None)
  Receive Date: 20070306
  Receipt Date: 20060316
  Transmission Date: 20071010
  Serious: Yes (Hospitalization)
  Sender: FDA-Public Use
  Company Number: A03200601506

PATIENT
  Age: 76 Year
  Sex: Male
  Weight: 88.43 kg

DRUGS (8)
  1. PLAVIX [Suspect]
     Indication: STENT PLACEMENT
     Dosage: 75 MG QD - ORAL
     Route: 048
     Dates: start: 20060112
  2. WARFARIN SODIUM [Suspect]
     Indication: STENT PLACEMENT
     Dosage: 5 MG QD - ORAL
     Route: 048
     Dates: start: 20060112
  3. ACETYLSALICYLIC ACID SRT [Concomitant]
  4. CLONIDINE [Concomitant]
  5. QUINAPRIL HCL [Concomitant]
  6. DIGOXIN [Concomitant]
  7. INDAPAMIDE [Concomitant]
  8. TORSEMIDE [Concomitant]

REACTIONS (3)
  - ANAEMIA [None]
  - MYOCARDIAL INFARCTION [None]
  - OEDEMA PERIPHERAL [None]
